FAERS Safety Report 25841963 (Version 1)
Quarter: 2025Q3

REPORT INFORMATION
  Report Type: Spontaneous
  Country: CH (occurrence: CH)
  Receive Date: 20250924
  Receipt Date: 20250924
  Transmission Date: 20251021
  Serious: Yes (Other)
  Sender: TAKEDA
  Company Number: None

PATIENT
  Age: 73 Year
  Sex: Female
  Weight: 64 kg

DRUGS (11)
  1. KIOVIG [Suspect]
     Active Substance: HUMAN IMMUNOGLOBULIN G
     Indication: Antisynthetase syndrome
     Dosage: 30 GRAM, QD
     Dates: start: 20250414, end: 20250417
  2. Co Valtan [Concomitant]
     Dosage: 80/12.5
  3. CHOLECALCIFEROL [Concomitant]
     Active Substance: CHOLECALCIFEROL
     Indication: Prophylaxis
     Dosage: 800 INTERNATIONAL UNIT, QD
  4. DAFALGAN [Concomitant]
     Active Substance: ACETAMINOPHEN
     Dosage: 1000 MILLIGRAM, Q6HR
  5. LEVOTHYROXINE SODIUM\LIOTHYRONINE SODIUM [Concomitant]
     Active Substance: LEVOTHYROXINE SODIUM\LIOTHYRONINE SODIUM
     Dosage: 0.5 DOSAGE FORM, QD
  6. METOPROLOL [Concomitant]
     Active Substance: METOPROLOL
     Dosage: 50 MILLIGRAM, Q12H
  7. CELLCEPT [Concomitant]
     Active Substance: MYCOPHENOLATE MOFETIL
     Dosage: 1000 MILLIGRAM, Q12H
  8. Calcimagon D3 Forte [Concomitant]
     Dosage: 1 DOSAGE FORM, QD
  9. FLUIMUCIL [Concomitant]
     Active Substance: ACETYLCYSTEINE
     Dosage: 600 MILLIGRAM, QD
  10. PANTOZOL [Concomitant]
     Active Substance: PANTOPRAZOLE SODIUM
     Dosage: 40 MILLIGRAM, QD
  11. MOXONIDINE [Concomitant]
     Active Substance: MOXONIDINE

REACTIONS (2)
  - Normochromic normocytic anaemia [Recovered/Resolved]
  - Coombs negative haemolytic anaemia [Recovered/Resolved]

NARRATIVE: CASE EVENT DATE: 20250421
